FAERS Safety Report 4644679-8 (Version None)
Quarter: 2005Q2

REPORT INFORMATION
  Report Type: 
  Country: None (occurrence: None)
  Receive Date: 20050426
  Receipt Date: 20050418
  Transmission Date: 20051028
  Serious: Yes (Hospitalization)
  Sender: FDA-Public Use
  Company Number: PHFR2005GB01559

PATIENT
  Age: 41 Year
  Sex: Male

DRUGS (4)
  1. DICLOFENAC SODIUM [Suspect]
     Route: 048
     Dates: start: 20010101, end: 20050325
  2. ASPIRIN [Suspect]
     Indication: ANALGESIC EFFECT
     Route: 048
     Dates: start: 20050201, end: 20050325
  3. CITALOPRAM HYDROBROMIDE [Suspect]
     Indication: DEPRESSION
     Dosage: 20 MG, QD
     Route: 048
     Dates: start: 20040901
  4. SALBUTAMOL [Concomitant]
     Indication: ASTHMA
     Dosage: 2 OT, BID
     Route: 055

REACTIONS (4)
  - DRUG INTERACTION [None]
  - GASTROINTESTINAL HAEMORRHAGE [None]
  - HAEMATEMESIS [None]
  - MELAENA [None]
